FAERS Safety Report 7508923-1 (Version None)
Quarter: 2011Q2

REPORT INFORMATION
  Report Type: 
  Country: None (occurrence: None)
  Receive Date: 20110527
  Receipt Date: 20110210
  Transmission Date: 20111010
  Serious: No
  Sender: FDA-Public Use
  Company Number: US-MYLANLABS-2011S1003043

PATIENT
  Sex: Female

DRUGS (1)
  1. SUMATRIPTAN SUCCINATE [Suspect]
     Indication: HEADACHE
     Dates: start: 20100101

REACTIONS (3)
  - DRUG EFFECT DECREASED [None]
  - HEADACHE [None]
  - PAIN IN JAW [None]
